FAERS Safety Report 21463526 (Version 1)
Quarter: 2022Q4

REPORT INFORMATION
  Report Type: Spontaneous
  Country: CN (occurrence: None)
  Receive Date: 20221017
  Receipt Date: 20221017
  Transmission Date: 20230112
  Serious: Yes (Other)
  Sender: FDA-Public Use
  Company Number: CN-ROCHE-3198459

PATIENT
  Age: 57 Year
  Sex: Female

DRUGS (18)
  1. MABTHERA [Suspect]
     Active Substance: RITUXIMAB
     Indication: Diffuse large B-cell lymphoma
     Dosage: 19-JUN-2020,19-JUL-2020,12-AUG-2020,15-SEP-2020,15-OCT-2020,10-NOV-2020; R-CHOP
     Route: 065
  2. MABTHERA [Suspect]
     Active Substance: RITUXIMAB
     Dosage: 24/DEC/2020, R2-GDP
     Route: 065
  3. CYCLOPHOSPHAMIDE [Concomitant]
     Active Substance: CYCLOPHOSPHAMIDE
     Indication: Diffuse large B-cell lymphoma
     Dosage: 19-JUN-2020,19-JUL-2020,12-AUG-2020,15-SEP-2020,15-OCT-2020,10-NOV-2020; R-CHOP
  4. VINCRISTINE [Concomitant]
     Active Substance: VINCRISTINE
     Indication: Diffuse large B-cell lymphoma
     Dosage: 19-JUN-2020,19-JUL-2020,12-AUG-2020,15-SEP-2020,15-OCT-2020,10-NOV-2020; R-CHOP
  5. PIRARUBICIN [Concomitant]
     Active Substance: PIRARUBICIN
     Indication: Diffuse large B-cell lymphoma
     Dosage: 19-JUN-2020,19-JUL-2020,12-AUG-2020,15-SEP-2020,15-OCT-2020,10-NOV-2020; R-CHOP
  6. DEXAMETHASONE [Concomitant]
     Active Substance: DEXAMETHASONE
     Indication: Diffuse large B-cell lymphoma
     Dosage: 19-JUN-2020,19-JUL-2020,12-AUG-2020,15-SEP-2020,15-OCT-2020,10-NOV-2020; R-CHOP
  7. DEXAMETHASONE [Concomitant]
     Active Substance: DEXAMETHASONE
     Dosage: R2-GDP
     Dates: start: 20201224, end: 20210508
  8. GEMCITABINE [Concomitant]
     Active Substance: GEMCITABINE
     Indication: Diffuse large B-cell lymphoma
     Dosage: R2-GDP
     Dates: start: 20201224, end: 20210508
  9. CISPLATIN [Concomitant]
     Active Substance: CISPLATIN
     Indication: Diffuse large B-cell lymphoma
     Dosage: R2-GDP
     Dates: start: 20201224, end: 20210508
  10. LENALIDOMIDE [Concomitant]
     Active Substance: LENALIDOMIDE
     Indication: Diffuse large B-cell lymphoma
     Dosage: R2-GDP
     Dates: start: 20201224, end: 20210508
  11. DECITABINE [Concomitant]
     Active Substance: DECITABINE
     Indication: Diffuse large B-cell lymphoma
     Dates: start: 20211105
  12. DOXORUBICIN HYDROCHLORIDE [Concomitant]
     Active Substance: DOXORUBICIN HYDROCHLORIDE
     Indication: Diffuse large B-cell lymphoma
     Dates: start: 20211105
  13. ZANUBRUTINIB [Concomitant]
     Active Substance: ZANUBRUTINIB
     Indication: Diffuse large B-cell lymphoma
     Route: 048
     Dates: start: 20211105
  14. PACLITAXEL [Concomitant]
     Active Substance: PACLITAXEL
     Indication: Diffuse large B-cell lymphoma
     Dates: start: 20211105
  15. BRENTUXIMAB VEDOTIN [Concomitant]
     Active Substance: BRENTUXIMAB VEDOTIN
     Indication: Diffuse large B-cell lymphoma
     Dates: start: 20220119
  16. BRENTUXIMAB VEDOTIN [Concomitant]
     Active Substance: BRENTUXIMAB VEDOTIN
     Dates: start: 20220629
  17. SINTILIMAB [Concomitant]
     Active Substance: SINTILIMAB
     Indication: Diffuse large B-cell lymphoma
     Dates: start: 20220119
  18. SINTILIMAB [Concomitant]
     Active Substance: SINTILIMAB
     Dates: start: 20220629

REACTIONS (6)
  - Haemophagocytic lymphohistiocytosis [Unknown]
  - Myelosuppression [Unknown]
  - Granulocyte count decreased [Unknown]
  - Pyrexia [Unknown]
  - Soft tissue infection [Unknown]
  - Skin infection [Unknown]

NARRATIVE: CASE EVENT DATE: 20200101
